FAERS Safety Report 6546302-4 (Version None)
Quarter: 2010Q1

REPORT INFORMATION
  Report Type: 
  Country: None (occurrence: None)
  Receive Date: 20100122
  Receipt Date: 20100119
  Transmission Date: 20100710
  Serious: Yes (Other)
  Sender: FDA-Public Use
  Company Number: US-ROCHE-673666

PATIENT
  Sex: Female
  Weight: 40.8 kg

DRUGS (12)
  1. BONIVA [Suspect]
     Indication: OSTEOPOROSIS
     Route: 048
     Dates: start: 20090830, end: 20091030
  2. OMEPRAZOLE [Concomitant]
  3. LISINOPRIL [Concomitant]
  4. XANAX [Concomitant]
  5. MAXZIDE [Concomitant]
  6. TRAMADOL [Concomitant]
  7. FEXOFENADINE [Concomitant]
  8. SENOKOT [Concomitant]
  9. VITAMINE D [Concomitant]
  10. CALCIUM [Concomitant]
  11. VITAMIN C [Concomitant]
  12. NAPROXEN SODIUM [Concomitant]

REACTIONS (6)
  - BONE PAIN [None]
  - CHEST PAIN [None]
  - MUSCLE ATROPHY [None]
  - MYALGIA [None]
  - NAUSEA [None]
  - VOMITING [None]
